FAERS Safety Report 26111602 (Version 1)
Quarter: 2025Q4

REPORT INFORMATION
  Report Type: Spontaneous
  Country: US (occurrence: US)
  Receive Date: 20251202
  Receipt Date: 20251202
  Transmission Date: 20260117
  Serious: Yes (Hospitalization, Other)
  Sender: STRIDES
  Company Number: US-STRIDES ARCOLAB LIMITED-2025SP014912

PATIENT
  Age: 55 Year
  Sex: Female

DRUGS (25)
  1. ETOPOSIDE [Suspect]
     Active Substance: ETOPOSIDE
     Indication: Haemophagocytic lymphohistiocytosis
     Dosage: UNK
     Route: 065
  2. ETOPOSIDE [Suspect]
     Active Substance: ETOPOSIDE
     Indication: Lymphoproliferative disorder
     Dosage: PART OF R-EPOCH CHEMOTHERAPY, FIRST CYCLE
     Route: 065
  3. ETOPOSIDE [Suspect]
     Active Substance: ETOPOSIDE
     Indication: Liver disorder
     Dosage: PART OF R-EPOCH CHEMOTHERAPY, SECOND CYCLE, RECEIVED 50% DOSE REDUCTION
     Route: 065
  4. ETOPOSIDE [Suspect]
     Active Substance: ETOPOSIDE
     Indication: Diffuse large B-cell lymphoma
     Dosage: PART OF R-EPOCH CHEMOTHERAPY, THIRD CYCLE
     Route: 065
  5. PREDNISONE [Suspect]
     Active Substance: PREDNISONE
     Indication: Haemophagocytic lymphohistiocytosis
     Dosage: PART OF R-EPOCH CHEMOTHERAPY, FIRST CYCLE
     Route: 065
  6. PREDNISONE [Suspect]
     Active Substance: PREDNISONE
     Indication: Lymphoproliferative disorder
     Dosage: PART OF R-EPOCH CHEMOTHERAPY, SECOND CYCLE, RECEIVED 50% DOSE REDUCTION
     Route: 065
  7. PREDNISONE [Suspect]
     Active Substance: PREDNISONE
     Indication: Diffuse large B-cell lymphoma
     Dosage: PART OF R-EPOCH CHEMOTHERAPY, THIRD CYCLE
     Route: 065
  8. PREDNISONE [Suspect]
     Active Substance: PREDNISONE
     Indication: Liver disorder
  9. DOXORUBICIN [Suspect]
     Active Substance: DOXORUBICIN
     Indication: Haemophagocytic lymphohistiocytosis
     Dosage: PART OF R-EPOCH CHEMOTHERAPY, FIRST CYCLE
     Route: 065
  10. DOXORUBICIN [Suspect]
     Active Substance: DOXORUBICIN
     Indication: Lymphoproliferative disorder
     Dosage: PART OF R-EPOCH CHEMOTHERAPY, SECOND CYCLE, RECEIVED 50% DOSE REDUCTION
     Route: 065
  11. DOXORUBICIN [Suspect]
     Active Substance: DOXORUBICIN
     Indication: Diffuse large B-cell lymphoma
     Dosage: PART OF R-EPOCH CHEMOTHERAPY, THIRD CYCLE
     Route: 065
  12. DOXORUBICIN [Suspect]
     Active Substance: DOXORUBICIN
     Indication: Liver disorder
  13. DEXAMETHASONE [Suspect]
     Active Substance: DEXAMETHASONE
     Indication: Haemophagocytic lymphohistiocytosis
     Dosage: UNK
     Route: 065
  14. RITUXIMAB [Suspect]
     Active Substance: RITUXIMAB
     Indication: Haemophagocytic lymphohistiocytosis
     Dosage: PART OF R-EPOCH CHEMOTHERAPY, FIRST CYCLE
     Route: 065
  15. RITUXIMAB [Suspect]
     Active Substance: RITUXIMAB
     Indication: Lymphoproliferative disorder
     Dosage: PART OF R-EPOCH CHEMOTHERAPY, SECOND CYCLE, RECEIVED 50% DOSE REDUCTION
     Route: 065
  16. RITUXIMAB [Suspect]
     Active Substance: RITUXIMAB
     Indication: Diffuse large B-cell lymphoma
     Dosage: PART OF R-EPOCH CHEMOTHERAPY, THIRD CYCLE
     Route: 065
  17. RITUXIMAB [Suspect]
     Active Substance: RITUXIMAB
     Indication: Liver disorder
  18. VINCRISTINE [Suspect]
     Active Substance: VINCRISTINE
     Indication: Haemophagocytic lymphohistiocytosis
     Dosage: PART OF R-EPOCH CHEMOTHERAPY, FIRST CYCLE
     Route: 065
  19. VINCRISTINE [Suspect]
     Active Substance: VINCRISTINE
     Indication: Lymphoproliferative disorder
     Dosage: PART OF R-EPOCH CHEMOTHERAPY, SECOND CYCLE, RECEIVED 50% DOSE REDUCTION
     Route: 065
  20. VINCRISTINE [Suspect]
     Active Substance: VINCRISTINE
     Indication: Liver disorder
     Dosage: PART OF R-EPOCH CHEMOTHERAPY, THIRD CYCLE
     Route: 065
  21. VINCRISTINE [Suspect]
     Active Substance: VINCRISTINE
     Indication: Diffuse large B-cell lymphoma
  22. CYCLOPHOSPHAMIDE [Suspect]
     Active Substance: CYCLOPHOSPHAMIDE
     Indication: Haemophagocytic lymphohistiocytosis
     Dosage: PART OF R-EPOCH CHEMOTHERAPY, FIRST CYCLE
     Route: 065
  23. CYCLOPHOSPHAMIDE [Suspect]
     Active Substance: CYCLOPHOSPHAMIDE
     Indication: Lymphoproliferative disorder
     Dosage: PART OF R-EPOCH CHEMOTHERAPY, SECOND CYCLE, RECEIVED 50% DOSE REDUCTION
     Route: 065
  24. CYCLOPHOSPHAMIDE [Suspect]
     Active Substance: CYCLOPHOSPHAMIDE
     Indication: Liver disorder
     Dosage: PART OF R-EPOCH CHEMOTHERAPY, THIRD CYCLE
     Route: 065
  25. CYCLOPHOSPHAMIDE [Suspect]
     Active Substance: CYCLOPHOSPHAMIDE
     Indication: Diffuse large B-cell lymphoma

REACTIONS (5)
  - Respiratory failure [Unknown]
  - Haemodynamic instability [Unknown]
  - Stress cardiomyopathy [Unknown]
  - Condition aggravated [Unknown]
  - Off label use [Unknown]
